FAERS Safety Report 24648603 (Version 3)
Quarter: 2024Q4

REPORT INFORMATION
  Report Type: Report from Study
  Country: US (occurrence: US)
  Receive Date: 20241121
  Receipt Date: 20241206
  Transmission Date: 20250114
  Serious: Yes (Hospitalization, Other)
  Sender: GILEAD
  Company Number: US-GILEAD-2024-0694648

PATIENT
  Sex: Female

DRUGS (4)
  1. AMBRISENTAN [Suspect]
     Active Substance: AMBRISENTAN
     Indication: Pulmonary hypertension
     Dosage: 10 MG, QD
     Route: 065
     Dates: start: 20240509
  2. AMBRISENTAN [Suspect]
     Active Substance: AMBRISENTAN
     Indication: Pulmonary arterial hypertension
  3. ADEMPAS [Concomitant]
     Active Substance: RIOCIGUAT
  4. REMODULIN [Concomitant]
     Active Substance: TREPROSTINIL

REACTIONS (7)
  - Pneumonia [Unknown]
  - Respiratory syncytial virus infection [Unknown]
  - Rhinovirus infection [Unknown]
  - Enterovirus infection [Unknown]
  - Brain natriuretic peptide increased [Unknown]
  - Dyspnoea [Unknown]
  - Gait inability [Unknown]
